FAERS Safety Report 11371391 (Version 1)
Quarter: 2015Q3

REPORT INFORMATION
  Report Type: Spontaneous
  Country: DE (occurrence: DE)
  Receive Date: 20150812
  Receipt Date: 20150812
  Transmission Date: 20151125
  Serious: Yes (Other)
  Sender: FDA-Public Use
  Company Number: DE-TEVA-521721GER

PATIENT

DRUGS (1)
  1. COPAXONE [Suspect]
     Active Substance: GLATIRAMER ACETATE
     Dates: start: 2012, end: 2012

REACTIONS (3)
  - Adverse event [Unknown]
  - Drug ineffective [Recovered/Resolved]
  - Secondary progressive multiple sclerosis [Not Recovered/Not Resolved]

NARRATIVE: CASE EVENT DATE: 2012
